FAERS Safety Report 19423259 (Version 6)
Quarter: 2022Q4

REPORT INFORMATION
  Report Type: Spontaneous
  Country: US (occurrence: US)
  Receive Date: 20210616
  Receipt Date: 20221227
  Transmission Date: 20230112
  Serious: Yes (Other)
  Sender: FDA-Public Use
  Company Number: US-PFIZER INC-2019396126

PATIENT
  Age: 68 Year
  Sex: Male
  Weight: 99.79 kg

DRUGS (2)
  1. CAVERJECT [Suspect]
     Active Substance: ALPROSTADIL
     Indication: Organic erectile dysfunction
     Dosage: 20 UG, WEEKLY(INJECTION DIRECTLY INTO PENIS, 10-30MIN BEFORE INTERCOURSE)
     Route: 017
  2. CAVERJECT [Suspect]
     Active Substance: ALPROSTADIL
     Dosage: 40 UG (ONCE 10-30 MINUTES BEFORE INTENDED INTERCOURSE)
     Route: 017
     Dates: start: 20201021

REACTIONS (5)
  - Erection increased [Recovered/Resolved]
  - Painful erection [Recovered/Resolved]
  - Penile discomfort [Recovered/Resolved]
  - Product prescribing error [Unknown]
  - Product dispensing error [Unknown]
